FAERS Safety Report 15463441 (Version 5)
Quarter: 2019Q1

REPORT INFORMATION
  Report Type: Spontaneous
  Country: CA (occurrence: CA)
  Receive Date: 20181004
  Receipt Date: 20190311
  Transmission Date: 20190417
  Serious: Yes (Other)
  Sender: FDA-Public Use
  Company Number: CA-CELLTRION INC.-2018CA022954

PATIENT

DRUGS (5)
  1. INFLECTRA [Suspect]
     Active Substance: INFLIXIMAB-DYYB
     Indication: ANKYLOSING SPONDYLITIS
     Dosage: 500 MG, Q 0, 2, 6 WEEKS, THEN EVERY 8 WEEKS;
     Route: 042
     Dates: start: 20180920
  2. INFLECTRA [Suspect]
     Active Substance: INFLIXIMAB-DYYB
     Dosage: 500 MG, Q 0, 2, 6 WEEKS, THEN EVERY 8 WEEKS;
     Route: 042
     Dates: start: 20181102
  3. INFLECTRA [Suspect]
     Active Substance: INFLIXIMAB-DYYB
     Dosage: 500 MG, Q 0, 2, 6 WEEKS, THEN EVERY 8 WEEKS;
     Route: 042
     Dates: start: 20190108, end: 20190108
  4. INFLECTRA [Suspect]
     Active Substance: INFLIXIMAB-DYYB
     Indication: COLITIS ULCERATIVE
     Dosage: 500 MG, Q 0, 2, 6 WEEKS, THEN EVERY 8 WEEKS;
     Route: 042
     Dates: start: 20180920
  5. INFLECTRA [Suspect]
     Active Substance: INFLIXIMAB-DYYB
     Dosage: 500 MG, Q 0, 2, 6 WEEKS, THEN EVERY 8 WEEKS;
     Route: 042
     Dates: start: 20181002

REACTIONS (13)
  - Oropharyngeal pain [Unknown]
  - Off label use [Unknown]
  - Heart rate decreased [Recovering/Resolving]
  - Headache [Recovered/Resolved]
  - Productive cough [Not Recovered/Not Resolved]
  - Infection [Unknown]
  - Aphonia [Unknown]
  - Rhinorrhoea [Not Recovered/Not Resolved]
  - Heart rate irregular [Unknown]
  - Heart rate increased [Recovering/Resolving]
  - Nasopharyngitis [Not Recovered/Not Resolved]
  - Drug effect incomplete [Unknown]
  - Condition aggravated [Recovering/Resolving]

NARRATIVE: CASE EVENT DATE: 20180920
